FAERS Safety Report 6534450-4 (Version None)
Quarter: 2009Q4

REPORT INFORMATION
  Report Type: 
  Country: None (occurrence: None)
  Receive Date: 20091228
  Receipt Date: 20090420
  Transmission Date: 20100525
  Serious: Yes (Hospitalization)
  Sender: FDA-Public Use
  Company Number: 20090129

PATIENT
  Age: 79 Year
  Sex: Male

DRUGS (1)
  1. VENOFER [Suspect]
     Indication: RENAL FAILURE CHRONIC
     Dosage: 300 MG EVERY 14 DAYS INTRAVENOUS
     Route: 042
     Dates: start: 20090227

REACTIONS (1)
  - PERITONEAL INFECTION [None]
